FAERS Safety Report 9283887 (Version 1)
Quarter: 2013Q2

REPORT INFORMATION
  Report Type: Spontaneous
  Country: GB (occurrence: GB)
  Receive Date: 20130510
  Receipt Date: 20130510
  Transmission Date: 20140414
  Serious: Yes (Hospitalization, Other)
  Sender: FDA-Public Use
  Company Number: PHHY2013GB044053

PATIENT
  Age: 24 Year
  Sex: Male

DRUGS (7)
  1. VALPROIC ACID [Suspect]
     Indication: CONVULSION
  2. CARBAMAZEPINE [Concomitant]
  3. BENZODIAZEPINES [Concomitant]
  4. PHENOBARBITONE [Concomitant]
  5. LEVETIRACETAM [Concomitant]
  6. TOPIRAMATE [Concomitant]
  7. LACOSAMIDE [Concomitant]

REACTIONS (4)
  - Hyperammonaemic encephalopathy [Unknown]
  - Lennox-Gastaut syndrome [Unknown]
  - Convulsion [Not Recovered/Not Resolved]
  - Drug ineffective [Unknown]
